FAERS Safety Report 7610321-7 (Version None)
Quarter: 2011Q3

REPORT INFORMATION
  Report Type: 
  Country: None (occurrence: None)
  Receive Date: 20110706
  Receipt Date: 20110620
  Transmission Date: 20111222
  Serious: Yes (Other)
  Sender: FDA-Public Use
  Company Number: FR-005585

PATIENT
  Sex: Female

DRUGS (5)
  1. MENOPUR [Suspect]
     Indication: OVULATION INDUCTION
     Dosage: 75 IU TID, FROM DAY 7 TO DAY 12, SUBCUTANEOUS
     Route: 058
     Dates: start: 20101101, end: 20101129
  2. ASPIRIN [Suspect]
     Indication: PRODUCT USED FOR UNKNOWN INDICATION
     Dosage: 160 MG, FOR A YEAR, ORAL
     Route: 048
     Dates: start: 20100101
  3. FOLIC ACID [Suspect]
     Indication: VITAMIN SUPPLEMENTATION
     Dosage: 0.4 G, TO BE STOPPED IN CASE OF INEFFECTIVE STIMULATION, ORAL;
     Route: 048
     Dates: start: 20101101, end: 20101129
  4. CETROTIDE [Suspect]
     Indication: OVULATION INDUCTION
     Dosage: 0.25 MG, FROM DAY 1 TO DAY 12, SUBCUTANEOUS
     Route: 058
     Dates: start: 20101101, end: 20101129
  5. GONAL-F [Suspect]
     Indication: OVULATION INDUCTION
     Dosage: 225 IU QD, FROM DAY 2 TO DAY 6, SUBCUTANEOUS
     Route: 058
     Dates: start: 20101101, end: 20101129

REACTIONS (3)
  - ANTINUCLEAR ANTIBODY POSITIVE [None]
  - AMAUROSIS [None]
  - MYDRIASIS [None]
